FAERS Safety Report 7773109-2 (Version None)
Quarter: 2011Q3

REPORT INFORMATION
  Report Type: 
  Country: None (occurrence: None)
  Receive Date: 20110922
  Receipt Date: 20100412
  Transmission Date: 20111222
  Serious: No
  Sender: FDA-Public Use
  Company Number: US-ASTRAZENECA-2009UW19091

PATIENT
  Age: 9068 Day
  Sex: Female

DRUGS (5)
  1. ABILIFY [Concomitant]
     Dosage: 10-15 MG
     Dates: start: 20051109
  2. CARISOPRODOL [Concomitant]
     Dates: start: 20071105
  3. SEROQUEL [Suspect]
     Route: 048
     Dates: start: 20070605
  4. ZOLOFT [Concomitant]
     Dates: start: 20051103
  5. DEPAKOTE [Concomitant]
     Dates: start: 20040901

REACTIONS (3)
  - GLUCOSE TOLERANCE IMPAIRED [None]
  - DIABETES MELLITUS [None]
  - BLOOD INSULIN INCREASED [None]
